FAERS Safety Report 6547741-8 (Version None)
Quarter: 2010Q1

REPORT INFORMATION
  Report Type: 
  Country: None (occurrence: None)
  Receive Date: 20100123
  Receipt Date: 20100120
  Transmission Date: 20100710
  Serious: Yes (Death)
  Sender: FDA-Public Use
  Company Number: DK-JNJFOC-20091004343

PATIENT
  Sex: Female
  Weight: 85.3 kg

DRUGS (11)
  1. RISPERIDONE [Suspect]
     Indication: PSYCHOTIC DISORDER
     Dosage: 4 MG IN THE MORNING 8 A.M. AND 4 MG IN THE EVENING 6 P.M.
     Route: 048
     Dates: start: 20090216
  2. ERYTHROMYCIN [Suspect]
     Indication: DRUG USE FOR UNKNOWN INDICATION
     Route: 065
     Dates: start: 20090507
  3. LYSANTIN [Suspect]
     Indication: ADVERSE DRUG REACTION
     Route: 048
     Dates: start: 20080206
  4. RIVOTRIL [Suspect]
     Indication: SEDATIVE THERAPY
     Route: 048
     Dates: start: 20090416
  5. CISORDINOL [Suspect]
     Indication: MENTAL DISORDER
     Route: 048
     Dates: start: 20090206
  6. IMIPRAMINE [Suspect]
     Indication: SALIVARY HYPERSECRETION
     Route: 048
     Dates: start: 20080206
  7. LEPONEX [Suspect]
     Indication: MENTAL DISORDER
     Route: 048
     Dates: start: 20080206
  8. TRUXAL [Suspect]
     Indication: MENTAL DISORDER
     Route: 048
     Dates: start: 20090318
  9. PARACETAMOL [Concomitant]
     Indication: PAIN
     Route: 048
     Dates: start: 19960919
  10. LACTULOSE [Concomitant]
     Indication: LAXATIVE SUPPORTIVE CARE
     Route: 065
     Dates: start: 20041111
  11. SODIUM PICOSULFATE [Concomitant]
     Indication: LAXATIVE SUPPORTIVE CARE
     Route: 048
     Dates: start: 20070821

REACTIONS (2)
  - SUDDEN DEATH [None]
  - TACHYCARDIA [None]
